FAERS Safety Report 20575041 (Version 1)
Quarter: 2022Q1

REPORT INFORMATION
  Report Type: Report from Study
  Country: US (occurrence: US)
  Receive Date: 20220310
  Receipt Date: 20220310
  Transmission Date: 20220423
  Serious: Yes (Other)
  Sender: FDA-Public Use
  Company Number: US-ABBVIE-22K-163-4283027-00

PATIENT
  Age: 61 Year
  Sex: Female

DRUGS (5)
  1. RINVOQ [Suspect]
     Active Substance: UPADACITINIB
     Indication: Rheumatoid arthritis
     Route: 048
     Dates: start: 202108, end: 202112
  2. RINVOQ [Suspect]
     Active Substance: UPADACITINIB
     Route: 048
  3. COVID-19 VACCINE [Concomitant]
     Indication: COVID-19 immunisation
     Dosage: 1ST DOSE
     Route: 030
  4. COVID-19 VACCINE [Concomitant]
     Dosage: 2ND DOSE
     Route: 030
  5. COVID-19 VACCINE [Concomitant]
     Dosage: BOOSTER VACCINE
     Route: 030

REACTIONS (6)
  - Tinea pedis [Unknown]
  - Skin odour abnormal [Recovered/Resolved]
  - Stress [Unknown]
  - Eczema [Unknown]
  - Acne [Unknown]
  - Acne [Recovered/Resolved]

NARRATIVE: CASE EVENT DATE: 20211201
